FAERS Safety Report 20883123 (Version 1)
Quarter: 2022Q2

REPORT INFORMATION
  Report Type: Spontaneous
  Country: US (occurrence: None)
  Receive Date: 20220526
  Receipt Date: 20220526
  Transmission Date: 20220721
  Serious: Yes (Hospitalization)
  Sender: FDA-Public Use
  Company Number: None

PATIENT
  Age: 19 Year
  Sex: Female
  Weight: 68.3 kg

DRUGS (2)
  1. PAXLOVID [Suspect]
     Active Substance: NIRMATRELVIR\RITONAVIR
     Indication: COVID-19
     Dates: start: 20220521, end: 20220525
  2. TACROLIMUS [Concomitant]
     Active Substance: TACROLIMUS

REACTIONS (4)
  - Nausea [None]
  - Tremor [None]
  - Drug interaction [None]
  - Immunosuppressant drug level increased [None]

NARRATIVE: CASE EVENT DATE: 20220521
